FAERS Safety Report 7919375-1 (Version None)
Quarter: 2011Q4

REPORT INFORMATION
  Report Type: 
  Country: None (occurrence: None)
  Receive Date: 20111115
  Receipt Date: 20111115
  Transmission Date: 20120403
  Serious: Yes (Hospitalization)
  Sender: FDA-Public Use
  Company Number: None

PATIENT
  Sex: Female
  Weight: 73.2 kg

DRUGS (7)
  1. DOXORUBICIN HCL [Suspect]
     Dosage: 76 MG
  2. CYCLOPHOSPHAMIDE [Suspect]
     Dosage: 1395 MG
  3. PREDNISONE TAB [Suspect]
     Dosage: 1100 MG
  4. VINCRISTINE SULFATE [Suspect]
     Dosage: 2.8 MG
  5. RITUXIMAB (MOAB C2B8 ANTI CD20, CHIMERIC) [Suspect]
     Dosage: 698 MG
  6. ETOPOSIDE [Suspect]
     Dosage: 372 MG
  7. NEUPOGEN [Concomitant]

REACTIONS (5)
  - FATIGUE [None]
  - MALAISE [None]
  - PYREXIA [None]
  - VULVOVAGINAL PRURITUS [None]
  - VAGINAL DISCHARGE [None]
